FAERS Safety Report 7436671-5 (Version None)
Quarter: 2011Q1

REPORT INFORMATION
  Report Type: 
  Country: None (occurrence: None)
  Receive Date: 20110302
  Receipt Date: 20101111
  Transmission Date: 20110831
  Serious: No
  Sender: FDA-Public Use
  Company Number: 022025

PATIENT
  Sex: Female

DRUGS (2)
  1. PREDNISONE [Concomitant]
  2. CIMZIA [Suspect]
     Indication: CROHN'S DISEASE
     Dosage: 200 MG 1X/4 WEEKS SUBCUTANEOUS
     Route: 058
     Dates: start: 20090723

REACTIONS (1)
  - CROHN'S DISEASE [None]
